FAERS Safety Report 9776984 (Version 3)
Quarter: 2014Q1

REPORT INFORMATION
  Report Type: Report from Study
  Country: US (occurrence: US)
  Receive Date: 20131221
  Receipt Date: 20140111
  Transmission Date: 20141002
  Serious: Yes (Hospitalization)
  Sender: FDA-Public Use
  Company Number: US-AMGEN-USACT2013088306

PATIENT
  Age: 80 Year
  Sex: Female
  Weight: 38.82 kg

DRUGS (16)
  1. PANITUMUMAB [Suspect]
     Indication: NON-SMALL CELL LUNG CANCER
     Dosage: 210 UNK, UNK
     Route: 042
     Dates: start: 20120712
  2. ALIMTA [Concomitant]
     Indication: NON-SMALL CELL LUNG CANCER
     Dosage: 650 UNK, UNK
     Route: 042
     Dates: start: 20120712
  3. CARBOPLATIN [Concomitant]
     Indication: NON-SMALL CELL LUNG CANCER
     Dosage: 326 UNK, UNK
     Route: 042
     Dates: start: 20120712
  4. FERROUS SULFATE [Concomitant]
     Indication: ANAEMIA
     Dosage: 325 MG, BID
     Route: 048
     Dates: start: 20130326
  5. FOLIC ACID [Concomitant]
     Indication: PROPHYLAXIS
     Dosage: 1 MG, QD
     Dates: start: 20120702
  6. VITAMIN B12                        /00056201/ [Concomitant]
     Indication: PROPHYLAXIS
     Dosage: 1000 MCG, ONCE IN NINE WEEK
     Dates: start: 20120702
  7. COMPAZINE                          /00013302/ [Concomitant]
     Indication: NAUSEA
     Dosage: 10 MG, Q6H, AS NECESSARY
     Dates: start: 20120712
  8. COMPAZINE                          /00013302/ [Concomitant]
     Indication: VOMITING
  9. LORTAB                             /00607101/ [Concomitant]
     Indication: PAIN
     Dosage: 5/500 MG, Q4H, AS NECESSARY
     Dates: start: 20120802
  10. ARANESP [Concomitant]
     Indication: ANAEMIA
     Dosage: 500 MCG, Q3WK
     Dates: start: 20121004
  11. ZOFRAN                             /00955301/ [Concomitant]
     Indication: NAUSEA
     Dosage: 8 MG, Q8H, AS NECESSARY
     Dates: start: 20120712
  12. ZOFRAN                             /00955301/ [Concomitant]
     Indication: VOMITING
  13. PHENERGAN                          /00033001/ [Concomitant]
     Indication: NAUSEA
     Dosage: 25 MG, Q4H, AS NECESSARY
     Dates: start: 20120712
  14. PHENERGAN                          /00033001/ [Concomitant]
     Indication: VOMITING
  15. LIPITOR [Concomitant]
     Indication: HYPERLIPIDAEMIA
     Dosage: 20 MG, QD
     Dates: start: 20000101
  16. PROMETHAZINE [Concomitant]

REACTIONS (1)
  - Urinary tract infection [Recovered/Resolved]
